FAERS Safety Report 16057042 (Version 1)
Quarter: 2019Q2

REPORT INFORMATION
  Report Type: Spontaneous
  Country: US (occurrence: US)
  Receive Date: 20190311
  Receipt Date: 20190311
  Transmission Date: 20190711
  Serious: Yes (Death)
  Sender: FDA-Public Use
  Company Number: None

PATIENT
  Age: 80 Year
  Sex: Female

DRUGS (1)
  1. CIMZIA [Suspect]
     Active Substance: CERTOLIZUMAB PEGOL
     Dosage: ?          OTHER FREQUENCY:ONCE MONTHLY;?
     Route: 058
     Dates: start: 20180314, end: 20190219

REACTIONS (1)
  - Death [None]

NARRATIVE: CASE EVENT DATE: 20190219
